FAERS Safety Report 18282724 (Version 1)
Quarter: 2020Q3

REPORT INFORMATION
  Report Type: Spontaneous
  Country: NL (occurrence: NL)
  Receive Date: 20200918
  Receipt Date: 20200918
  Transmission Date: 20201103
  Serious: Yes (Other)
  Sender: FDA-Public Use
  Company Number: NL-VISTAPHARM, INC.-VER202009-001518

PATIENT
  Age: 79 Year
  Sex: Female

DRUGS (4)
  1. FLUCLOXACILLIN [Suspect]
     Active Substance: FLUCLOXACILLIN
     Dosage: 6 G/24 HOURS
     Route: 042
  2. FLUCLOXACILLIN [Suspect]
     Active Substance: FLUCLOXACILLIN
     Indication: STAPHYLOCOCCAL BACTERAEMIA
     Dosage: 12 G/24 HOURS
     Route: 042
  3. HYDROCODONE AND ACETAMINOPHEN [Suspect]
     Active Substance: ACETAMINOPHEN\HYDROCODONE
     Indication: PRODUCT USED FOR UNKNOWN INDICATION
     Dosage: 3 G PER DAY
  4. FLUCLOXACILLIN [Suspect]
     Active Substance: FLUCLOXACILLIN
     Dosage: 3 G/24 HOURS
     Route: 042

REACTIONS (4)
  - Hyperprolinaemia [Unknown]
  - Depressed level of consciousness [Unknown]
  - Metabolic acidosis [Unknown]
  - Respiratory acidosis [Unknown]
